FAERS Safety Report 7031332-9 (Version None)
Quarter: 2010Q4

REPORT INFORMATION
  Report Type: 
  Country: None (occurrence: None)
  Receive Date: 20101006
  Receipt Date: 20100930
  Transmission Date: 20110411
  Serious: Yes (Hospitalization, Disabling)
  Sender: FDA-Public Use
  Company Number: FR-ROCHE-656442

PATIENT
  Sex: Male
  Weight: 72 kg

DRUGS (14)
  1. METHOXY POLYETHYLENE GLYCOL-EPOETIN BETA [Suspect]
     Dosage: FORM: PRE-FILLED SYRINGE.
     Route: 042
     Dates: start: 20090407
  2. METHOXY POLYETHYLENE GLYCOL-EPOETIN BETA [Suspect]
     Dosage: LAST DOSE PRIOR TO SAE ON 27 JULY 2009 WAS 75 UG AND WITH A BATCH LOT NUMBER H0004H20. FORM:PFS
     Route: 042
     Dates: start: 20090504, end: 20091019
  3. CORVASAL [Concomitant]
     Dates: start: 20090116
  4. IKOREL [Concomitant]
     Dates: start: 20060309
  5. KARDEGIC [Concomitant]
     Dates: start: 20020605
  6. RENAGEL [Concomitant]
     Dates: start: 20080711
  7. TAHOR [Concomitant]
     Dates: start: 20060104
  8. IXPRIM [Concomitant]
     Dates: start: 20071128
  9. SPECIAFOLDINE [Concomitant]
     Dates: start: 20071115, end: 20080928
  10. SPECIAFOLDINE [Concomitant]
     Dates: start: 20091014
  11. MOTILIUM [Concomitant]
     Dates: start: 20071128, end: 20090928
  12. MOTILIUM [Concomitant]
     Dates: start: 20091014
  13. MOPRAL [Concomitant]
     Dates: start: 20000508
  14. NULYTELY [Concomitant]
     Dates: start: 20080815

REACTIONS (4)
  - CELLULITIS [None]
  - LYMPHANGITIS [None]
  - OPTIC ISCHAEMIC NEUROPATHY [None]
  - THROMBOSIS [None]
